FAERS Safety Report 12804009 (Version 1)
Quarter: 2016Q4

REPORT INFORMATION
  Report Type: Spontaneous
  Country: US (occurrence: US)
  Receive Date: 20161001
  Receipt Date: 20161001
  Transmission Date: 20170207
  Serious: Yes (Other)
  Sender: FDA-Public Use
  Company Number: None

PATIENT
  Age: 56 Year
  Sex: Female
  Weight: 52.65 kg

DRUGS (10)
  1. OXYCODONE [Suspect]
     Active Substance: OXYCODONE
     Indication: PAIN
     Dosage: ?          QUANTITY:90 TABLET(S);?
     Route: 048
     Dates: start: 20160928
  2. OXYCODONE [Suspect]
     Active Substance: OXYCODONE
     Indication: FIBROMYALGIA
     Dosage: ?          QUANTITY:90 TABLET(S);?
     Route: 048
     Dates: start: 20160928
  3. HYDROCORTISONE. [Concomitant]
     Active Substance: HYDROCORTISONE
  4. LISINOPRIL. [Concomitant]
     Active Substance: LISINOPRIL
  5. LEXAPRO [Concomitant]
     Active Substance: ESCITALOPRAM OXALATE
  6. BIOTIN [Concomitant]
     Active Substance: BIOTIN
  7. VITAMIN D [Concomitant]
     Active Substance: CHOLECALCIFEROL
  8. OXYCODONE [Suspect]
     Active Substance: OXYCODONE
     Indication: ARTHRITIS
     Dosage: ?          QUANTITY:90 TABLET(S);?
     Route: 048
     Dates: start: 20160928
  9. LYRICA [Concomitant]
     Active Substance: PREGABALIN
  10. HYDROXYZINE [Concomitant]
     Active Substance: HYDROXYZINE\HYDROXYZINE HYDROCHLORIDE

REACTIONS (6)
  - Pruritus [None]
  - Product substitution issue [None]
  - Eye pruritus [None]
  - Drug ineffective [None]
  - Dizziness [None]
  - Dyspnoea [None]

NARRATIVE: CASE EVENT DATE: 20160928
